FAERS Safety Report 7754038-7 (Version None)
Quarter: 2011Q3

REPORT INFORMATION
  Report Type: 
  Country: None (occurrence: None)
  Receive Date: 20110915
  Receipt Date: 20110909
  Transmission Date: 20111222
  Serious: Yes (Hospitalization, Other)
  Sender: FDA-Public Use
  Company Number: US-SANOFI-AVENTIS-2011SA059751

PATIENT
  Age: 47 Year
  Sex: Male

DRUGS (3)
  1. PLAVIX [Suspect]
     Route: 065
     Dates: end: 20070101
  2. ASPIRIN [Suspect]
     Route: 065
     Dates: start: 19970101
  3. PLAVIX [Suspect]
     Route: 065
     Dates: start: 19970101

REACTIONS (7)
  - CIRCULATORY COLLAPSE [None]
  - ABDOMINAL DISTENSION [None]
  - HAEMATEMESIS [None]
  - GASTROINTESTINAL HAEMORRHAGE [None]
  - ARRHYTHMIA [None]
  - ABDOMINAL PAIN UPPER [None]
  - RECTAL HAEMORRHAGE [None]
